FAERS Safety Report 10733250 (Version 1)
Quarter: 2015Q1

REPORT INFORMATION
  Report Type: Spontaneous
  Country: DE (occurrence: None)
  Receive Date: 20150120
  Receipt Date: 20150120
  Transmission Date: 20150721
  Serious: Yes (Other)
  Sender: FDA-Public Use
  Company Number: FK201500197

PATIENT
  Age: 57 Year
  Sex: Male

DRUGS (3)
  1. GEMCITABINE [Suspect]
     Active Substance: GEMCITABINE\GEMCITABINE HYDROCHLORIDE
     Indication: PANCREATIC CARCINOMA METASTATIC
  2. GRANULOCYTE COLONY-STIMULATING FACTOR NOS [Concomitant]
     Active Substance: GRANULOCYTE COLONY-STIMULATING FACTOR NOS
  3. NAB PACLITAXEL [Suspect]
     Active Substance: PACLITAXEL
     Indication: PANCREATIC CARCINOMA METASTATIC

REACTIONS (11)
  - Leukopenia [None]
  - Performance status decreased [None]
  - Haematotoxicity [None]
  - Thrombocytopenia [None]
  - Nail disorder [None]
  - Neuropathy peripheral [None]
  - Alopecia [None]
  - Anaemia [None]
  - Rash [None]
  - Metastases to peritoneum [None]
  - Intestinal obstruction [None]
